FAERS Safety Report 12369441 (Version 1)
Quarter: 2016Q2

REPORT INFORMATION
  Report Type: Spontaneous
  Country: US (occurrence: None)
  Receive Date: 20160513
  Receipt Date: 20160513
  Transmission Date: 20160815
  Serious: No
  Sender: FDA-Public Use
  Company Number: None

PATIENT
  Age: 23 Year
  Sex: Female
  Weight: 77.11 kg

DRUGS (1)
  1. NEXPLANON [Suspect]
     Active Substance: ETONOGESTREL

REACTIONS (8)
  - Decreased appetite [None]
  - Depression [None]
  - Depressed mood [None]
  - Implant site bruising [None]
  - Implant site pain [None]
  - Menorrhagia [None]
  - Apathy [None]
  - Libido decreased [None]

NARRATIVE: CASE EVENT DATE: 20160401
